FAERS Safety Report 4448309-X (Version None)
Quarter: 2004Q3

REPORT INFORMATION
  Report Type: 
  Country: None (occurrence: None)
  Receive Date: 20040913
  Receipt Date: 20040824
  Transmission Date: 20050211
  Serious: Yes (Death)
  Sender: FDA-Public Use
  Company Number: 2004230257GR

PATIENT
  Age: 48 Year
  Sex: Male

DRUGS (2)
  1. BEXTRA [Suspect]
     Dosage: ORAL
     Route: 048
     Dates: start: 20040801
  2. PARIET (RABEPRAZOLE SODIUM) [Concomitant]

REACTIONS (1)
  - CARDIAC ARREST [None]
